FAERS Safety Report 9745242 (Version 2)
Quarter: 2014Q1

REPORT INFORMATION
  Report Type: Spontaneous
  Country: US (occurrence: US)
  Receive Date: 20131211
  Receipt Date: 20140310
  Transmission Date: 20141002
  Serious: No
  Sender: FDA-Public Use
  Company Number: US-PFIZER INC-2013349546

PATIENT
  Sex: Female

DRUGS (2)
  1. CALAN SR [Suspect]
     Indication: HEADACHE
     Dosage: 100 MG, UNK
  2. VERAPAMIL HCL [Suspect]
     Indication: HEADACHE
     Dosage: UNK

REACTIONS (2)
  - Reaction to drug excipients [Unknown]
  - Off label use [Unknown]
